FAERS Safety Report 5930459-X (Version None)
Quarter: 2008Q4

REPORT INFORMATION
  Report Type: 
  Country: None (occurrence: None)
  Receive Date: 20081022
  Receipt Date: 20081013
  Transmission Date: 20090506
  Serious: Yes (Hospitalization, Other)
  Sender: FDA-Public Use
  Company Number: 035503

PATIENT
  Age: 84 Year
  Sex: Male

DRUGS (2)
  1. CARVEDILOL [Suspect]
     Dosage: 375 MG, 60 TABS X 6.25MG AT ONCE,
  2. SIMVASTATIN [Suspect]
     Dosage: 300 MG, 15 TABS X 20MG AT ONCE,

REACTIONS (8)
  - AV DISSOCIATION [None]
  - BLOOD GLUCOSE INCREASED [None]
  - BRADYCARDIA [None]
  - DRUG INEFFECTIVE [None]
  - DRUG TOXICITY [None]
  - HYPOTENSION [None]
  - NODAL RHYTHM [None]
  - OVERDOSE [None]
